FAERS Safety Report 7775993-5 (Version None)
Quarter: 2011Q3

REPORT INFORMATION
  Report Type: 
  Country: None (occurrence: None)
  Receive Date: 20110923
  Receipt Date: 20110914
  Transmission Date: 20111222
  Serious: Yes (Other)
  Sender: FDA-Public Use
  Company Number: US-ASTRAZENECA-2011SE53298

PATIENT
  Age: 18 Year
  Sex: Male

DRUGS (1)
  1. NEXIUM [Suspect]
     Route: 048

REACTIONS (5)
  - ILL-DEFINED DISORDER [None]
  - THROAT IRRITATION [None]
  - GASTRIC ULCER HAEMORRHAGE [None]
  - SPEECH DISORDER [None]
  - DYSPEPSIA [None]
